FAERS Safety Report 9614618 (Version 3)
Quarter: 2014Q1

REPORT INFORMATION
  Report Type: Spontaneous
  Country: GB (occurrence: GB)
  Receive Date: 20131011
  Receipt Date: 20140128
  Transmission Date: 20141002
  Serious: Yes (Other)
  Sender: FDA-Public Use
  Company Number: GB-TEVA-382868ISR

PATIENT
  Sex: Female

DRUGS (5)
  1. METOPROLOL [Suspect]
     Indication: HYPERTENSION
     Route: 042
  2. DIAMORPHINE [Concomitant]
     Indication: PAIN
     Dosage: 15 MILLIGRAM DAILY;
     Route: 058
  3. CYCLIZINE [Concomitant]
     Dosage: 150 MILLIGRAM DAILY;
     Route: 058
  4. DEXAMETHASONE [Concomitant]
     Indication: DISEASE PROGRESSION
     Dosage: 16 MILLIGRAM DAILY;
  5. TINZAPARIN [Concomitant]
     Dosage: 4500 UNITS DAILY
     Route: 058

REACTIONS (1)
  - Malignant neoplasm progression [Unknown]
